FAERS Safety Report 20856828 (Version 2)
Quarter: 2022Q2

REPORT INFORMATION
  Report Type: Spontaneous
  Country: GB (occurrence: GB)
  Receive Date: 20220520
  Receipt Date: 20220617
  Transmission Date: 20220720
  Serious: Yes (Other)
  Sender: FDA-Public Use
  Company Number: GB-GRUNENTHAL-2021-272096

PATIENT
  Age: 26 Year
  Sex: Female
  Weight: 72.5 kg

DRUGS (5)
  1. QUTENZA [Suspect]
     Active Substance: CAPSAICIN
     Indication: Scar pain
     Dosage: UNK
     Route: 065
     Dates: start: 20210916
  2. QUTENZA [Suspect]
     Active Substance: CAPSAICIN
     Dosage: UNK
     Route: 065
     Dates: start: 20211125
  3. PREGABALIN [Concomitant]
     Active Substance: PREGABALIN
     Indication: Neuralgia
     Dosage: UNK
     Route: 065
     Dates: start: 2019
  4. BISOPROLOL [Concomitant]
     Active Substance: BISOPROLOL
     Indication: Arrhythmia
     Dosage: UNK
     Route: 065
     Dates: start: 2009
  5. OMEPRAZOLE [Concomitant]
     Active Substance: OMEPRAZOLE
     Indication: Gastritis
     Dosage: UNK
     Route: 065
     Dates: start: 2019

REACTIONS (3)
  - Maternal exposure during pregnancy [Unknown]
  - Foetal distress syndrome [Recovered/Resolved]
  - Amniotic fluid volume decreased [Unknown]

NARRATIVE: CASE EVENT DATE: 20210916
